FAERS Safety Report 17135133 (Version 6)
Quarter: 2021Q4

REPORT INFORMATION
  Report Type: Spontaneous
  Country: US (occurrence: US)
  Receive Date: 20191210
  Receipt Date: 20211203
  Transmission Date: 20220303
  Serious: Yes (Death, Other)
  Sender: FDA-Public Use
  Company Number: US-PFIZER INC-2019530867

PATIENT
  Age: 78 Year
  Sex: Male
  Weight: 88 kg

DRUGS (3)
  1. INLYTA [Suspect]
     Active Substance: AXITINIB
     Indication: Renal cancer
     Dosage: 3 MG, 2X/DAY (3 MORNING 3 EVENING)
     Dates: start: 20190521
  2. INLYTA [Suspect]
     Active Substance: AXITINIB
     Dosage: 1 MG
  3. KEYTRUDA [Concomitant]
     Active Substance: PEMBROLIZUMAB
     Dosage: 1 MG, UNK [EVERY 3RD MONDAY]
     Dates: start: 20190520

REACTIONS (6)
  - Death [Fatal]
  - Cataract [Unknown]
  - Aphonia [Not Recovered/Not Resolved]
  - Diarrhoea [Not Recovered/Not Resolved]
  - Dysphonia [Not Recovered/Not Resolved]
  - Neoplasm progression [Unknown]

NARRATIVE: CASE EVENT DATE: 20190101
